FAERS Safety Report 9110050 (Version 1)
Quarter: 2013Q1

REPORT INFORMATION
  Report Type: Spontaneous
  Country: US (occurrence: US)
  Receive Date: 20130222
  Receipt Date: 20130222
  Transmission Date: 20140127
  Serious: Yes (Hospitalization)
  Sender: FDA-Public Use
  Company Number: US-BAYER-2013-021010

PATIENT
  Age: 47 Year
  Sex: Female
  Weight: 77.1 kg

DRUGS (9)
  1. YASMIN [Suspect]
     Indication: UTERINE LEIOMYOMA
  2. YASMIN [Suspect]
     Indication: DYSFUNCTIONAL UTERINE BLEEDING
  3. ALEVE [Concomitant]
  4. INH [Concomitant]
  5. ALBUTEROL [Concomitant]
     Indication: WHEEZING
     Dosage: 2 PUFFS, EVERY 4 HOURS AS NEEDED
  6. ANTIHISTAMINES [Concomitant]
     Dosage: AS NEEDED
  7. ADVAIR [Concomitant]
     Dosage: 250/50 TWICE A DAY
  8. ALDACTONE A [Concomitant]
     Dosage: 25MG A DAY, 1-2 PER DAY AS NEEDED
  9. BENADRYL [Concomitant]

REACTIONS (2)
  - Pulmonary embolism [Recovering/Resolving]
  - Deep vein thrombosis [Recovered/Resolved]
